FAERS Safety Report 8593832 (Version 4)
Quarter: 2013Q4

REPORT INFORMATION
  Report Type: Report from Study
  Country: US (occurrence: US)
  Receive Date: 20120515
  Receipt Date: 20131108
  Transmission Date: 20140711
  Serious: Yes (Hospitalization, Other)
  Sender: FDA-Public Use
  Company Number: US-009507513-2012SP024147

PATIENT
  Sex: Female

DRUGS (4)
  1. RIBAVIRIN [Suspect]
     Indication: HEPATITIS C
     Dosage: 600 MG, UNKNOWN
     Route: 065
     Dates: start: 20120316, end: 20120424
  2. RIBAVIRIN [Suspect]
     Dosage: 400 MG, UNKNOWN
     Route: 065
  3. PEGASYS [Concomitant]
     Indication: HEPATITIS C
     Dosage: UNK UNK, UNKNOWN
     Route: 065
     Dates: start: 20120316, end: 20120424
  4. PEGASYS [Concomitant]
     Dosage: UNK UNK, UNKNOWN
     Route: 065

REACTIONS (4)
  - Dehydration [Unknown]
  - Anaemia [Unknown]
  - Nausea [Unknown]
  - Alopecia [Unknown]
